FAERS Safety Report 17610757 (Version 3)
Quarter: 2020Q2

REPORT INFORMATION
  Report Type: Spontaneous
  Country: AE (occurrence: AE)
  Receive Date: 20200401
  Receipt Date: 20200506
  Transmission Date: 20200713
  Serious: Yes (Other)
  Sender: FDA-Public Use
  Company Number: AE-PFIZER INC-2020130819

PATIENT
  Age: 57 Year
  Sex: Male

DRUGS (8)
  1. FLOUROURACIL [Concomitant]
     Active Substance: FLUOROURACIL
     Indication: TRANSITIONAL CELL CARCINOMA
  2. FOLINIC ACID [Concomitant]
     Active Substance: LEUCOVORIN
     Indication: TRANSITIONAL CELL CARCINOMA
  3. FLOUROURACIL [Concomitant]
     Active Substance: FLUOROURACIL
     Indication: CHOLANGIOCARCINOMA
     Dosage: UNK, CYCLIC (FIVE CYCLES)
     Dates: start: 2018
  4. FOLINIC ACID [Concomitant]
     Active Substance: LEUCOVORIN
     Indication: CHOLANGIOCARCINOMA
     Dosage: UNK, CYCLIC (FIVE CYCLES)
     Dates: start: 2018
  5. IRINOTECAN [Concomitant]
     Active Substance: IRINOTECAN
     Indication: TRANSITIONAL CELL CARCINOMA
  6. OXALIPLATIN. [Suspect]
     Active Substance: OXALIPLATIN
     Indication: TRANSITIONAL CELL CARCINOMA
  7. IRINOTECAN [Concomitant]
     Active Substance: IRINOTECAN
     Indication: CHOLANGIOCARCINOMA
     Dosage: UNK, CYCLIC (FIVE CYCLES)
     Dates: start: 2018
  8. OXALIPLATIN. [Suspect]
     Active Substance: OXALIPLATIN
     Indication: CHOLANGIOCARCINOMA
     Dosage: UNK, CYCLIC (FIVE CYCLES)
     Dates: start: 2018

REACTIONS (6)
  - Renal tubular necrosis [Recovering/Resolving]
  - Nephropathy [Recovering/Resolving]
  - Ileus [Recovering/Resolving]
  - Renal tubular acidosis [Unknown]
  - Nephropathy toxic [Recovering/Resolving]
  - Fanconi syndrome [Recovering/Resolving]
